FAERS Safety Report 9051397 (Version 1)
Quarter: 2013Q1

REPORT INFORMATION
  Report Type: Spontaneous
  Country: US (occurrence: US)
  Receive Date: 20130206
  Receipt Date: 20130206
  Transmission Date: 20140127
  Serious: No
  Sender: FDA-Public Use
  Company Number: US-ALLERGAN-1204651US

PATIENT
  Age: 85 Year
  Sex: Female

DRUGS (5)
  1. RESTASIS [Suspect]
     Indication: DRY EYE
     Dosage: 2 GTT, BID
     Route: 047
     Dates: end: 201203
  2. PROBIOTIC [Concomitant]
     Indication: GASTRIC DISORDER
     Dosage: UNK
  3. CARAFATE [Concomitant]
     Indication: GASTRIC DISORDER
     Dosage: UNK
  4. SYNTHROID [Concomitant]
     Indication: THYROID DISORDER
     Dosage: UNK
  5. ZOLPIDEM [Concomitant]
     Indication: INSOMNIA
     Dosage: BEDTIME, AS NEEDED

REACTIONS (3)
  - Nasal discomfort [Recovered/Resolved]
  - Oral discomfort [Recovered/Resolved]
  - Eye irritation [Recovering/Resolving]
